FAERS Safety Report 19291843 (Version 1)
Quarter: 2021Q2

REPORT INFORMATION
  Report Type: Spontaneous
  Country: FR (occurrence: FR)
  Receive Date: 20210524
  Receipt Date: 20210524
  Transmission Date: 20210717
  Serious: Yes (Life-Threatening, Other)
  Sender: FDA-Public Use
  Company Number: FR-SUN PHARMACEUTICAL INDUSTRIES LTD-2021RR-297384

PATIENT
  Age: 14 Year
  Sex: Female

DRUGS (2)
  1. PARACETAMOL [Suspect]
     Active Substance: ACETAMINOPHEN
     Indication: PRODUCT USED FOR UNKNOWN INDICATION
     Dosage: 15 GRAM, IN TOTAL
     Route: 048
     Dates: start: 20210328, end: 20210328
  2. SPASFON [Concomitant]
     Indication: PRODUCT USED FOR UNKNOWN INDICATION
     Dosage: UNK
     Route: 065

REACTIONS (4)
  - Hepatic cytolysis [Recovering/Resolving]
  - Intentional overdose [Recovered/Resolved]
  - Suicide attempt [Unknown]
  - Hepatic failure [Recovering/Resolving]

NARRATIVE: CASE EVENT DATE: 20210328
